FAERS Safety Report 24767923 (Version 1)
Quarter: 2024Q4

REPORT INFORMATION
  Report Type: Spontaneous
  Country: US (occurrence: None)
  Receive Date: 20241221
  Receipt Date: 20241221
  Transmission Date: 20250115
  Serious: Yes (Life-Threatening, Hospitalization, Disabling, Congenital Anomaly, Other)
  Sender: Public
  Company Number: None

PATIENT
  Sex: Female
  Weight: 63 kg

DRUGS (1)
  1. INVEGA [Suspect]
     Active Substance: PALIPERIDONE
     Dates: start: 20110923, end: 20241212

REACTIONS (4)
  - Drug abuse [None]
  - Intentional product misuse [None]
  - Victim of abuse [None]
  - Weight increased [None]

NARRATIVE: CASE EVENT DATE: 20241125
